FAERS Safety Report 25517584 (Version 1)
Quarter: 2025Q3

REPORT INFORMATION
  Report Type: Spontaneous
  Country: EU (occurrence: EU)
  Receive Date: 20250704
  Receipt Date: 20250704
  Transmission Date: 20251020
  Serious: Yes (Hospitalization)
  Sender: RANBAXY
  Company Number: EU-SUN PHARMACEUTICAL INDUSTRIES LTD-2025RR-515219

PATIENT
  Age: 63 Year
  Sex: Male
  Weight: 93 kg

DRUGS (11)
  1. OLANZAPINE [Interacting]
     Active Substance: OLANZAPINE
     Indication: Major depression
     Dosage: 10 MILLIGRAM, Q1H
     Route: 048
     Dates: start: 20240515, end: 20240613
  2. RISPERIDONE [Interacting]
     Active Substance: RISPERIDONE
     Indication: Major depression
     Dosage: 2 MILLIGRAM, DAILY
     Route: 048
     Dates: start: 202403, end: 20240613
  3. CLOMIPRAMINE HYDROCHLORIDE [Interacting]
     Active Substance: CLOMIPRAMINE HYDROCHLORIDE
     Indication: Major depression
     Dosage: 100 MILLIGRAM, DAILY
     Route: 048
     Dates: start: 202403, end: 20240613
  4. TROPATEPINE HYDROCHLORIDE [Suspect]
     Active Substance: TROPATEPINE HYDROCHLORIDE
     Indication: Tremor
     Dosage: 10 MILLIGRAM, TID
     Route: 048
     Dates: start: 20240607, end: 20240611
  5. TROPATEPINE HYDROCHLORIDE [Suspect]
     Active Substance: TROPATEPINE HYDROCHLORIDE
     Dosage: 10 MILLIGRAM, DAILY
     Route: 048
     Dates: end: 20240620
  6. LOXAPAC 25 mg, film-coated tablet [Concomitant]
     Indication: Delirium
     Route: 048
     Dates: start: 20240608, end: 20240608
  7. ATORVASTATIN [Concomitant]
     Active Substance: ATORVASTATIN
     Indication: Hypertension
     Dosage: 10 MILLIGRAM, DAILY
     Route: 048
  8. BISOPROLOL FUMARATE [Concomitant]
     Active Substance: BISOPROLOL FUMARATE
     Indication: Hypertension
     Dosage: 10 MILLIGRAM, DAILY
     Route: 048
  9. DOLIPRANE 500 mg, tablet [Concomitant]
     Indication: Pyrexia
     Dosage: 1 GRAM, TID
     Route: 048
  10. HYDROCHLOROTHIAZIDE [Concomitant]
     Active Substance: HYDROCHLOROTHIAZIDE
     Indication: Hypertension
     Dosage: 12.5 MILLIGRAM, DAILY
     Route: 048
  11. OXAZEPAM [Concomitant]
     Active Substance: OXAZEPAM
     Indication: Mixed anxiety and depressive disorder
     Dosage: 10 MILLIGRAM, TID
     Route: 048

REACTIONS (2)
  - Neuroleptic malignant syndrome [Recovered/Resolved]
  - Drug interaction [Recovered/Resolved]

NARRATIVE: CASE EVENT DATE: 20240608
